FAERS Safety Report 8297181-9 (Version None)
Quarter: 2012Q2

REPORT INFORMATION
  Report Type: 
  Country: None (occurrence: None)
  Receive Date: 20120419
  Receipt Date: 20120416
  Transmission Date: 20120825
  Serious: No
  Sender: FDA-Public Use
  Company Number: US-PFIZER INC-2012095194

PATIENT
  Sex: Female

DRUGS (4)
  1. TAMOXIFEN CITRATE [Suspect]
     Indication: BREAST CANCER
     Dosage: UNK
  2. FASLODEX [Suspect]
     Indication: BREAST CANCER
     Dosage: UNK
  3. ANASTROZOLE [Suspect]
     Indication: BREAST CANCER
     Dosage: UNK
  4. AROMASIN [Suspect]
     Indication: BREAST CANCER
     Dosage: UNK

REACTIONS (1)
  - DRUG INEFFECTIVE [None]
